FAERS Safety Report 15081896 (Version 7)
Quarter: 2019Q3

REPORT INFORMATION
  Report Type: Spontaneous
  Country: US (occurrence: US)
  Receive Date: 20180628
  Receipt Date: 20190731
  Transmission Date: 20191004
  Serious: No
  Sender: FDA-Public Use
  Company Number: US-PFIZER INC-2018260651

PATIENT
  Age: 70 Year
  Sex: Female
  Weight: 63.5 kg

DRUGS (9)
  1. CYCLOBENZAPRINE. [Concomitant]
     Active Substance: CYCLOBENZAPRINE
     Dosage: 10 MG, 1X/DAY [ 1 TABLET AT BEDTIME]
     Route: 048
  2. FLUOXETINE [Concomitant]
     Active Substance: FLUOXETINE HYDROCHLORIDE
     Dosage: 40 MG, DAILY [EVERY DAY]
     Route: 048
  3. EUCRISA [Suspect]
     Active Substance: CRISABOROLE
     Indication: DERMATITIS ATOPIC
     Dosage: UNK, 2X/DAY (QTY: 4 60 GM TUBE(S) REFILLS: 3 )
     Route: 061
  4. LORAZEPAM. [Concomitant]
     Active Substance: LORAZEPAM
     Dosage: 1 MG, 3X/DAY
  5. HYDROCODONE/ACETAMINOPHEN [Concomitant]
     Active Substance: ACETAMINOPHEN\HYDROCODONE
     Dosage: 1 DF, AS NEEDED [HYDROCODONE BITARTRATE 5MG]-[PARACETAMOL 325MG]
     Route: 048
  6. ALEVE [Concomitant]
     Active Substance: NAPROXEN SODIUM
     Dosage: UNK, AS NEEDED [PRN]
  7. BIOTIN [Concomitant]
     Active Substance: BIOTIN
     Dosage: UNK, AS NEEDED [PRN]
  8. VENTOLIN HFA [Concomitant]
     Active Substance: ALBUTEROL SULFATE
     Dosage: 180 UG, AS NEEDED (INHALE 2 PUFF(S) EVERY 4 HOURS)
     Route: 055
  9. EUCRISA [Suspect]
     Active Substance: CRISABOROLE
     Indication: DERMATITIS

REACTIONS (11)
  - Burning sensation [Unknown]
  - Sinus congestion [Unknown]
  - Pain in extremity [Unknown]
  - Cough [Unknown]
  - Condition aggravated [Unknown]
  - Arthralgia [Unknown]
  - Hypoaesthesia [Unknown]
  - Rash [Unknown]
  - Rhinorrhoea [Unknown]
  - Headache [Unknown]
  - Overweight [Unknown]
